FAERS Safety Report 13007688 (Version 2)
Quarter: 2017Q3

REPORT INFORMATION
  Report Type: Spontaneous
  Country: US (occurrence: US)
  Receive Date: 20161207
  Receipt Date: 20170719
  Transmission Date: 20171127
  Serious: No
  Sender: FDA-Public Use
  Company Number: US-BAYER-2016-229510

PATIENT
  Age: 72 Year
  Sex: Female
  Weight: 81.63 kg

DRUGS (3)
  1. MIRALAX [Suspect]
     Active Substance: POLYETHYLENE GLYCOL 3350
     Indication: GASTROINTESTINAL DISORDER
     Dosage: 1 DF, BID
     Route: 048
     Dates: start: 201608
  2. MIRALAX [Suspect]
     Active Substance: POLYETHYLENE GLYCOL 3350
     Indication: GASTROINTESTINAL DISORDER
     Dosage: ? OR ? TEASPOON, BID
     Route: 048
     Dates: start: 201608
  3. INSULIN [Concomitant]
     Active Substance: INSULIN NOS

REACTIONS (4)
  - Underdose [Unknown]
  - Faeces soft [Unknown]
  - Diarrhoea [Unknown]
  - Product use issue [Unknown]
